FAERS Safety Report 8033760-1 (Version None)
Quarter: 2012Q1

REPORT INFORMATION
  Report Type: 
  Country: None (occurrence: None)
  Receive Date: 20120110
  Receipt Date: 20120107
  Transmission Date: 20120608
  Serious: No
  Sender: FDA-Public Use
  Company Number: US-PFIZER INC-2012005018

PATIENT
  Sex: Male

DRUGS (1)
  1. ADVIL COLD AND SINUS [Suspect]
     Dosage: 2 CAPSULES, JUST ONCE
     Route: 048
     Dates: start: 20120107

REACTIONS (1)
  - EYE SWELLING [None]
